FAERS Safety Report 8525312-1 (Version None)
Quarter: 2012Q3

REPORT INFORMATION
  Report Type: 
  Country: None (occurrence: None)
  Receive Date: 20120720
  Receipt Date: 20120718
  Transmission Date: 20120928
  Serious: Yes (Hospitalization, Other)
  Sender: FDA-Public Use
  Company Number: PHEH2012US007161

PATIENT
  Sex: Female
  Weight: 49.433 kg

DRUGS (7)
  1. PROTONIX [Concomitant]
     Dosage: 40 MG, UNK
     Route: 048
  2. SERTRALINE HYDROCHLORIDE [Concomitant]
     Dosage: 100 MG, UNK
     Route: 048
  3. PETROL LA [Concomitant]
     Dosage: UNK UKN, QD
     Route: 048
  4. CLARITIN [Concomitant]
     Dosage: UNK UKN, QD
     Route: 048
  5. METOPROLOL SUCCINATE [Concomitant]
     Dosage: 25 MG, BID
     Route: 048
  6. RECLAST [Suspect]
     Dosage: UNK UKN, UNK
     Route: 042
  7. SYNTHROID [Concomitant]
     Dosage: 100 UG, UNK
     Route: 048

REACTIONS (1)
  - FEMUR FRACTURE [None]
